FAERS Safety Report 25047386 (Version 1)
Quarter: 2025Q1

REPORT INFORMATION
  Report Type: Spontaneous
  Country: DE (occurrence: DE)
  Receive Date: 20250306
  Receipt Date: 20250306
  Transmission Date: 20250409
  Serious: Yes (Other)
  Sender: MYLAN
  Company Number: DE-SANDOZ-SDZ2025DE010438

PATIENT
  Sex: Male

DRUGS (3)
  1. METOPROLOL [Suspect]
     Active Substance: METOPROLOL
     Indication: Heart rate increased
  2. RIZATRIPTAN [Suspect]
     Active Substance: RIZATRIPTAN
     Indication: Product used for unknown indication
  3. AIMOVIG [Suspect]
     Active Substance: ERENUMAB-AOOE
     Indication: Product used for unknown indication

REACTIONS (1)
  - Hypertension [Unknown]
